FAERS Safety Report 11587021 (Version 1)
Quarter: 2015Q3

REPORT INFORMATION
  Report Type: Spontaneous
  Country: US (occurrence: US)
  Receive Date: 20150916
  Receipt Date: 20150916
  Transmission Date: 20151125
  Serious: No
  Sender: FDA-Public Use
  Company Number: US-ELI_LILLY_AND_COMPANY-US200802003921

PATIENT
  Age: 78 Year
  Sex: Female

DRUGS (5)
  1. THYROXIN [Concomitant]
     Active Substance: LEVOTHYROXINE
     Dosage: 50 UG, UNK
  2. VITAMIN D [Concomitant]
     Active Substance: CHOLECALCIFEROL
  3. FORTEO [Suspect]
     Active Substance: TERIPARATIDE
     Indication: OSTEOPOROSIS
     Dosage: UNK, UNK
     Dates: start: 200801
  4. CALCIUM [Concomitant]
     Active Substance: CALCIUM
     Indication: SUPPLEMENTATION THERAPY
  5. ZOCOR [Concomitant]
     Active Substance: SIMVASTATIN
     Dosage: 10 MG, UNK

REACTIONS (4)
  - Abdominal pain upper [Not Recovered/Not Resolved]
  - Dizziness [Not Recovered/Not Resolved]
  - Nausea [Not Recovered/Not Resolved]
  - Muscle spasms [Not Recovered/Not Resolved]

NARRATIVE: CASE EVENT DATE: 2008
